FAERS Safety Report 6425342-X (Version None)
Quarter: 2009Q4

REPORT INFORMATION
  Report Type: 
  Country: None (occurrence: None)
  Receive Date: 20091103
  Receipt Date: 20091027
  Transmission Date: 20100525
  Serious: Yes (Death, Hospitalization)
  Sender: FDA-Public Use
  Company Number: A0811872A

PATIENT
  Age: 47 Year
  Sex: Female
  Weight: 100 kg

DRUGS (15)
  1. AVANDIA [Suspect]
     Indication: DIABETES MELLITUS
     Dosage: 8MG PER DAY
     Route: 048
     Dates: start: 20020701, end: 20050601
  2. INSULIN [Concomitant]
  3. NORVASC [Concomitant]
  4. DILANTIN [Concomitant]
  5. ATENOLOL [Concomitant]
  6. PRAVACHOL [Concomitant]
  7. ZAROXOLYN [Concomitant]
  8. NEXIUM [Concomitant]
  9. GLUCOPHAGE [Concomitant]
  10. AMARYL [Concomitant]
  11. BENZONATATE [Concomitant]
  12. KLOR-CON [Concomitant]
  13. SINGULAIR [Concomitant]
  14. IMDUR [Concomitant]
  15. LASIX [Concomitant]

REACTIONS (3)
  - CEREBROVASCULAR ACCIDENT [None]
  - MYOCARDIAL INFARCTION [None]
  - RENAL FAILURE [None]
